FAERS Safety Report 8942878 (Version 1)
Quarter: 2012Q4

REPORT INFORMATION
  Report Type: 
  Country: US (occurrence: US)
  Receive Date: 20121204
  Receipt Date: 20121204
  Transmission Date: 20130627
  Serious: No
  Sender: FDA-Public Use
  Company Number: US-B.I. PHARMACEUTICALS,INC./RIDGEFIELD-2012-BI-02139BP

PATIENT
  Age: 71 Year
  Sex: Female

DRUGS (4)
  1. SPIRIVA [Suspect]
     Indication: BRONCHITIS CHRONIC
     Dosage: 18 mcg
     Route: 055
     Dates: start: 20121101
  2. LATANOPROST [Concomitant]
     Indication: EYE DISORDER
     Dates: start: 201111
  3. LEVOTHYROXINE [Concomitant]
     Indication: HYPOTHYROIDISM
     Dosage: 75 mcg
     Route: 048
     Dates: start: 1972
  4. LORATADINE [Concomitant]
     Indication: HYPERSENSITIVITY
     Dosage: 10 mg
     Route: 048
     Dates: start: 2010

REACTIONS (1)
  - Sensitivity of teeth [Not Recovered/Not Resolved]
